FAERS Safety Report 8002877-X (Version None)
Quarter: 2011Q4

REPORT INFORMATION
  Report Type: 
  Country: None (occurrence: None)
  Receive Date: 20111222
  Receipt Date: 20110120
  Transmission Date: 20120403
  Serious: No
  Sender: FDA-Public Use
  Company Number: US-GLAXOSMITHKLINE-A0907731A

PATIENT
  Age: 76 Year
  Sex: Male

DRUGS (9)
  1. LANTUS [Concomitant]
  2. ASPIRIN [Concomitant]
  3. VITAMIN TAB [Concomitant]
     Indication: MACULAR DEGENERATION
  4. LIPITOR [Concomitant]
  5. AVODART [Suspect]
     Indication: PROSTATOMEGALY
     Dosage: 1CAP PER DAY
     Route: 048
     Dates: start: 20110111, end: 20110114
  6. HUMALOG [Concomitant]
  7. VARICELLA VIRUS VACCINE (NON-GSK) [Suspect]
     Indication: PROPHYLAXIS
     Route: 065
     Dates: start: 20110110, end: 20110110
  8. NIASPAN [Concomitant]
  9. METFORMIN HCL [Concomitant]

REACTIONS (1)
  - BLOOD GLUCOSE INCREASED [None]
